FAERS Safety Report 9554549 (Version 3)
Quarter: 2014Q1

REPORT INFORMATION
  Report Type: Report from Study
  Country: DE (occurrence: DE)
  Receive Date: 20130925
  Receipt Date: 20140109
  Transmission Date: 20141002
  Serious: Yes (Death, Other)
  Sender: FDA-Public Use
  Company Number: DE-EXELIXIS-XL18413003244

PATIENT
  Age: 79 Year
  Sex: Male
  Weight: 54.9 kg

DRUGS (5)
  1. XL184 [Suspect]
     Indication: PROSTATE CANCER
     Dosage: 60 MG, QD
     Route: 048
     Dates: start: 20130822, end: 20130902
  2. XL184 [Suspect]
     Indication: PROSTATE CANCER
     Dosage: 5 MG, BID
     Route: 048
     Dates: start: 20130822, end: 20130902
  3. METOPROLOL [Concomitant]
  4. BLOPRESS [Concomitant]
  5. AGGRENOX [Concomitant]

REACTIONS (3)
  - Hepatic failure [Fatal]
  - Pleural effusion [Not Recovered/Not Resolved]
  - Sepsis [Not Recovered/Not Resolved]
